FAERS Safety Report 19909311 (Version 1)
Quarter: 2021Q4

REPORT INFORMATION
  Report Type: Other
  Country: US (occurrence: US)
  Receive Date: 20211001
  Receipt Date: 20211001
  Transmission Date: 20220303
  Serious: No
  Sender: FDA-Public Use
  Company Number: US-AMARIN PHARMA, INC.-2021AMR000183

PATIENT
  Age: 65 Year
  Sex: Male
  Weight: 81.72 kg

DRUGS (2)
  1. VASCEPA [Suspect]
     Active Substance: ICOSAPENT ETHYL
     Indication: Blood triglycerides increased
     Route: 048
     Dates: start: 20200620, end: 202012
  2. VASCEPA [Suspect]
     Active Substance: ICOSAPENT ETHYL
     Indication: Myocardial infarction

REACTIONS (3)
  - Dyspnoea [Not Recovered/Not Resolved]
  - Angina pectoris [Not Recovered/Not Resolved]
  - Blood triglycerides increased [Not Recovered/Not Resolved]
